FAERS Safety Report 5073445-7 (Version None)
Quarter: 2006Q3

REPORT INFORMATION
  Report Type: 
  Country: None (occurrence: None)
  Receive Date: 20060803
  Receipt Date: 20060731
  Transmission Date: 20061208
  Serious: Yes (Hospitalization)
  Sender: FDA-Public Use
  Company Number: TPA2006A01211

PATIENT
  Age: 71 Year
  Sex: Male
  Weight: 98.8842 kg

DRUGS (7)
  1. ACTOS [Suspect]
     Indication: DIABETES MELLITUS INSULIN-DEPENDENT
     Dosage: 45 MG, 1 IN 1 D, PER ORAL
     Route: 048
  2. INSULIN PEN (INSULIN) [Concomitant]
  3. GLIPIZIDE [Concomitant]
  4. STARLIX [Concomitant]
  5. LISINOPRIL [Concomitant]
  6. TRICOR [Concomitant]
  7. CRESTOR [Concomitant]

REACTIONS (3)
  - COUGH [None]
  - MYALGIA [None]
  - SUBARACHNOID HAEMORRHAGE [None]
